FAERS Safety Report 6111222-6 (Version None)
Quarter: 2009Q1

REPORT INFORMATION
  Report Type: 
  Country: None (occurrence: None)
  Receive Date: 20090309
  Receipt Date: 20090309
  Transmission Date: 20090719
  Serious: Yes (Life-Threatening)
  Sender: FDA-Public Use
  Company Number: None

PATIENT
  Sex: Female
  Weight: 69 kg

DRUGS (21)
  1. SIROLIMUS [Suspect]
     Indication: IMMUNOSUPPRESSION
     Dosage: 2MG QD PO
     Route: 048
     Dates: start: 20050516, end: 20080201
  2. SIROLIMUS [Suspect]
     Indication: LUNG TRANSPLANT
     Dosage: 2MG QD PO
     Route: 048
     Dates: start: 20050516, end: 20080201
  3. PROGRAF [Concomitant]
  4. PREDNISONE [Concomitant]
  5. BACTRIM [Concomitant]
  6. CODEINE SUL TAB [Concomitant]
  7. ALENDRONATE SODIUM [Concomitant]
  8. CALCITRIOL [Concomitant]
  9. CALCIUM [Concomitant]
  10. ENOXAPARIN SODIUM [Concomitant]
  11. LANSOPROZOLE [Concomitant]
  12. MAGNESIUM SULFATE [Concomitant]
  13. METOPROLOL TARTRATE [Concomitant]
  14. M.V.I. [Concomitant]
  15. ZOLPIDEMATOVAQUONE [Concomitant]
  16. DARBOPOETIN [Concomitant]
  17. REGULAR INSULIN [Concomitant]
  18. FLUTICASONE PROPIONATE [Concomitant]
  19. ACETYLCYSTEINE [Concomitant]
  20. MORPHINE [Concomitant]
  21. POTASSIUM CHLORIDE [Concomitant]

REACTIONS (1)
  - DEEP VEIN THROMBOSIS [None]
